FAERS Safety Report 20710251 (Version 1)
Quarter: 2022Q2

REPORT INFORMATION
  Report Type: Spontaneous
  Country: CA (occurrence: CA)
  Receive Date: 20220414
  Receipt Date: 20220414
  Transmission Date: 20220721
  Serious: Yes (Death, Life-Threatening, Other)
  Sender: FDA-Public Use
  Company Number: CA-Covis Pharma GmbH-2022COV01072

PATIENT
  Age: 71 Year
  Sex: Male

DRUGS (1)
  1. RILUTEK [Suspect]
     Active Substance: RILUZOLE
     Indication: Amyotrophic lateral sclerosis
     Dosage: TWICE DAILY (BID)
     Route: 048

REACTIONS (1)
  - Death [Fatal]
